FAERS Safety Report 11800302 (Version 1)
Quarter: 2015Q4

REPORT INFORMATION
  Report Type: Spontaneous
  Country: US (occurrence: US)
  Receive Date: 20151203
  Receipt Date: 20151203
  Transmission Date: 20160305
  Serious: No
  Sender: FDA-Public Use
  Company Number: US-UCBSA-2015028985

PATIENT
  Sex: Female

DRUGS (1)
  1. ISOSORBIDE MONONITRATE EXTENDED RELEASE [Suspect]
     Active Substance: ISOSORBIDE MONONITRATE
     Indication: PRODUCT USED FOR UNKNOWN INDICATION
     Dosage: 30MG TABLETS IN HALF

REACTIONS (1)
  - Wrong technique in product usage process [Unknown]
